FAERS Safety Report 15179062 (Version 1)
Quarter: 2018Q3

REPORT INFORMATION
  Report Type: Spontaneous
  Country: US (occurrence: US)
  Receive Date: 20180723
  Receipt Date: 20180723
  Transmission Date: 20181010
  Serious: No
  Sender: FDA-Public Use
  Company Number: US-009507513-1101USA01972

PATIENT
  Age: 21 Year
  Sex: Female

DRUGS (6)
  1. ZIDOVUDINE. [Suspect]
     Active Substance: ZIDOVUDINE
     Dosage: 3656 (UNITS NOT REPORTED), QD
     Route: 042
  2. LOPINAVIR (+) RITONAVIR [Suspect]
     Active Substance: LOPINAVIR\RITONAVIR
     Dosage: 4 (UNITS NOT REPORTED), QD
     Route: 048
  3. DARUNAVIR [Suspect]
     Active Substance: DARUNAVIR
     Dosage: 400 (UNITS NOT REPORTED), QD
     Route: 048
  4. ISENTRESS [Suspect]
     Active Substance: RALTEGRAVIR POTASSIUM
     Dosage: 800 (UNITS NOT REPORTED), QD
     Route: 048
  5. EMTRICITABINE (+) TENOFOVIR DISOPROXIL FUMARATE [Suspect]
     Active Substance: EMTRICITABINE\TENOFOVIR DISOPROXIL
     Dosage: 1 (UNITS NOT REPORTED), QD
     Route: 048
  6. RITONAVIR. [Suspect]
     Active Substance: RITONAVIR
     Dosage: 100 (UNITS NOT REPORTED), QD
     Route: 048

REACTIONS (2)
  - No adverse event [Unknown]
  - Exposure during pregnancy [Recovered/Resolved]
